FAERS Safety Report 25565507 (Version 1)
Quarter: 2025Q3

REPORT INFORMATION
  Report Type: Spontaneous
  Country: US (occurrence: None)
  Receive Date: 20250716
  Receipt Date: 20250716
  Transmission Date: 20251020
  Serious: Yes (Hospitalization)
  Sender: FDA-CTU
  Company Number: None

PATIENT
  Age: 65 Year
  Sex: Female
  Weight: 62.3 kg

DRUGS (6)
  1. FLUOROURACIL [Suspect]
     Active Substance: FLUOROURACIL
     Dates: end: 20250613
  2. LEUCOVORIN [Suspect]
     Active Substance: LEUCOVORIN\LEUCOVORIN CALCIUM
  3. IRINOTECAN [Suspect]
     Active Substance: IRINOTECAN
  4. OXALIPLATIN [Suspect]
     Active Substance: OXALIPLATIN
  5. ATORVASTATIN CALCIUM [Concomitant]
     Active Substance: ATORVASTATIN CALCIUM
  6. METFORMIN [Concomitant]
     Active Substance: METFORMIN HYDROCHLORIDE

REACTIONS (6)
  - Vomiting [None]
  - Urosepsis [None]
  - Pseudomonas test positive [None]
  - Pancytopenia [None]
  - Neutropenia [None]
  - Hydronephrosis [None]

NARRATIVE: CASE EVENT DATE: 20250606
